FAERS Safety Report 10142214 (Version 1)
Quarter: 2014Q2

REPORT INFORMATION
  Report Type: Spontaneous
  Country: US (occurrence: US)
  Receive Date: 20140429
  Receipt Date: 20140429
  Transmission Date: 20141212
  Serious: Yes (Hospitalization, Other)
  Sender: FDA-Public Use
  Company Number: PHEH2014US008403

PATIENT
  Sex: Female

DRUGS (6)
  1. EXELON PATCH [Suspect]
     Dosage: 4.6 MG (PATCH 5 CM2), QD
     Route: 062
  2. SIMVASTATIN [Concomitant]
     Dosage: 20 MG, UNK
  3. PAROXETINE [Concomitant]
     Dosage: 40 MG, UNK
  4. NADOLOL [Concomitant]
     Dosage: 40 MG, UNK
  5. VITAMIN D [Concomitant]
     Dosage: 1000 IU, UNK
  6. CENTRUM SILVER [Concomitant]
     Dosage: UNK UKN, UNK

REACTIONS (4)
  - Hypophagia [Unknown]
  - Malaise [Unknown]
  - Blood potassium decreased [Unknown]
  - Blood sodium decreased [Unknown]
